FAERS Safety Report 9165055 (Version 2)
Quarter: 2013Q1

REPORT INFORMATION
  Report Type: Spontaneous
  Country: VE (occurrence: VE)
  Receive Date: 20130315
  Receipt Date: 20130320
  Transmission Date: 20140127
  Serious: Yes (Other)
  Sender: FDA-Public Use
  Company Number: VE-PFIZER INC-2013085814

PATIENT
  Age: 67 Year
  Sex: Female

DRUGS (2)
  1. LIPITOR [Suspect]
     Indication: HYPERCHOLESTEROLAEMIA
     Dosage: 20 MG, 1X/DAY
     Route: 048
     Dates: start: 2006, end: 201212
  2. ZOLOFT [Suspect]
     Indication: SENILE DEMENTIA
     Dosage: 50 MG, 1X/DAY
     Route: 048
     Dates: start: 2005, end: 201211

REACTIONS (4)
  - Epilepsy [Recovered/Resolved]
  - Hypertension [Not Recovered/Not Resolved]
  - Oedema peripheral [Recovered/Resolved]
  - Heart rate decreased [Recovered/Resolved]
